FAERS Safety Report 5420867-8 (Version None)
Quarter: 2007Q3

REPORT INFORMATION
  Report Type: 
  Country: None (occurrence: None)
  Receive Date: 20070817
  Receipt Date: 20070817
  Transmission Date: 20080115
  Serious: Yes (Hospitalization)
  Sender: FDA-Public Use
  Company Number: None

PATIENT
  Age: 75 Year
  Sex: Male

DRUGS (1)
  1. MOXIFLOXACIN HCL [Suspect]
     Indication: UPPER RESPIRATORY TRACT INFECTION
     Dosage: 400MG EVERY DAY PO
     Route: 048
     Dates: start: 20070423, end: 20070502

REACTIONS (1)
  - CLOSTRIDIUM DIFFICILE COLITIS [None]
